FAERS Safety Report 6090977-3 (Version None)
Quarter: 2009Q1

REPORT INFORMATION
  Report Type: 
  Country: None (occurrence: None)
  Receive Date: 20090220
  Receipt Date: 20090220
  Transmission Date: 20090719
  Serious: No
  Sender: FDA-Public Use
  Company Number: None

PATIENT
  Sex: Female
  Weight: 63.18 kg

DRUGS (8)
  1. TEMOZOLOMIDE [Suspect]
     Indication: GLIOBLASTOMA MULTIFORME
     Dosage: 3780 MG
     Dates: start: 20081223, end: 20090112
  2. COUMADIN [Concomitant]
  3. DILANTIN [Concomitant]
  4. FAMOTIDINE [Concomitant]
  5. KEPPRA [Concomitant]
  6. MEGACE [Concomitant]
  7. SYNTHROID [Concomitant]
  8. ZANTAC [Concomitant]

REACTIONS (4)
  - ACTIVITIES OF DAILY LIVING IMPAIRED [None]
  - ASTHENIA [None]
  - FALL [None]
  - PANCYTOPENIA [None]
